FAERS Safety Report 11374685 (Version 1)
Quarter: 2015Q3

REPORT INFORMATION
  Report Type: Spontaneous
  Country: US (occurrence: None)
  Receive Date: 20150812
  Receipt Date: 20150812
  Transmission Date: 20151125
  Serious: Yes (Other)
  Sender: FDA-Public Use
  Company Number: None

PATIENT
  Age: 41 Year
  Sex: Female
  Weight: 63.5 kg

DRUGS (1)
  1. XARELTO [Suspect]
     Active Substance: RIVAROXABAN
     Indication: THROMBOSIS
     Dosage: TAKEN BY MOUTH
     Route: 048
     Dates: start: 20150725, end: 20150731

REACTIONS (5)
  - Feeling abnormal [None]
  - Cognitive disorder [None]
  - Fatigue [None]
  - Amnesia [None]
  - Personality change [None]

NARRATIVE: CASE EVENT DATE: 20150725
